FAERS Safety Report 5290654-2 (Version None)
Quarter: 2007Q2

REPORT INFORMATION
  Report Type: 
  Country: None (occurrence: None)
  Receive Date: 20070409
  Receipt Date: 20070330
  Transmission Date: 20071010
  Serious: Yes (Other)
  Sender: FDA-Public Use
  Company Number: NL-GLAXOSMITHKLINE-B0465292A

PATIENT
  Age: 57 Year
  Sex: Female

DRUGS (1)
  1. MALARONE [Suspect]
     Route: 048

REACTIONS (2)
  - DEPRESSION [None]
  - FEELING ABNORMAL [None]
